FAERS Safety Report 13037609 (Version 1)
Quarter: 2016Q4

REPORT INFORMATION
  Report Type: Spontaneous
  Country: US (occurrence: US)
  Receive Date: 20161217
  Receipt Date: 20161217
  Transmission Date: 20170207
  Serious: Yes (Hospitalization, Other)
  Sender: FDA-Public Use
  Company Number: US-SUN PHARMACEUTICAL INDUSTRIES LTD-2016US-127316

PATIENT
  Age: 54 Year
  Sex: Male
  Weight: 65.8 kg

DRUGS (1)
  1. PHENYTOIN. [Suspect]
     Active Substance: PHENYTOIN
     Indication: TREMOR
     Dosage: 400 MG, TID
     Route: 065

REACTIONS (4)
  - Ataxia [Recovering/Resolving]
  - Overdose [Recovering/Resolving]
  - Toxicity to various agents [Recovering/Resolving]
  - Dizziness [Recovering/Resolving]
